FAERS Safety Report 12220690 (Version 4)
Quarter: 2016Q4

REPORT INFORMATION
  Report Type: Spontaneous
  Country: CA (occurrence: CA)
  Receive Date: 20160330
  Receipt Date: 20161229
  Transmission Date: 20170207
  Serious: Yes (Hospitalization, Other)
  Sender: FDA-Public Use
  Company Number: CA-APOTEX-2016AP007360

PATIENT
  Age: 58 Year
  Sex: Female

DRUGS (27)
  1. APO-LEVETIRACETAM [Suspect]
     Active Substance: LEVETIRACETAM
     Indication: SEIZURE
  2. KETAMINE HCL [Suspect]
     Active Substance: KETAMINE HYDROCHLORIDE
     Indication: STATUS EPILEPTICUS
     Dosage: UNK, UNKNOWN
     Route: 030
  3. PIPERACILLINTAZOBACTAM ORPHA [Concomitant]
     Indication: APPENDICITIS
     Route: 065
  4. APO-MIDAZOLAM INJECTABLE (APOTEX STD) [Suspect]
     Active Substance: MIDAZOLAM HYDROCHLORIDE
     Indication: STATUS EPILEPTICUS
     Dosage: UNK, UNKNOWN
     Route: 030
  5. APO-VALPROIC [Suspect]
     Active Substance: VALPROIC ACID
     Indication: SEIZURE
  6. METHYLPREDNISOLONE. [Concomitant]
     Active Substance: METHYLPREDNISOLONE
     Indication: STATUS EPILEPTICUS
     Dosage: 4 G, TOTAL
     Route: 042
  7. APO-VALPROIC [Suspect]
     Active Substance: VALPROIC ACID
     Indication: STATUS EPILEPTICUS
     Dosage: UNK, UNKNOWN
     Route: 065
  8. PHENYTOIN. [Suspect]
     Active Substance: PHENYTOIN
     Indication: STATUS EPILEPTICUS
     Dosage: UNK UNK, UNKNOWN
     Route: 065
  9. PHENYTOIN. [Suspect]
     Active Substance: PHENYTOIN
     Indication: SEIZURE
  10. PROPOFOL. [Suspect]
     Active Substance: PROPOFOL
     Indication: SEIZURE
  11. FORANE [Suspect]
     Active Substance: ISOFLURANE
     Indication: MAINTENANCE OF ANAESTHESIA
  12. APO-LEVETIRACETAM [Suspect]
     Active Substance: LEVETIRACETAM
     Indication: STATUS EPILEPTICUS
     Dosage: UNK, UNKNOWN
     Route: 065
  13. PROPOFOL. [Suspect]
     Active Substance: PROPOFOL
     Indication: MAINTENANCE OF ANAESTHESIA
  14. KETAMINE HCL [Suspect]
     Active Substance: KETAMINE HYDROCHLORIDE
     Indication: MAINTENANCE OF ANAESTHESIA
  15. PHENOBARBITAL. [Suspect]
     Active Substance: PHENOBARBITAL
     Indication: SEIZURE
  16. APO-VALPROIC [Suspect]
     Active Substance: VALPROIC ACID
     Indication: MAINTENANCE OF ANAESTHESIA
  17. PHENYTOIN. [Suspect]
     Active Substance: PHENYTOIN
     Indication: MAINTENANCE OF ANAESTHESIA
  18. KETAMINE HCL [Suspect]
     Active Substance: KETAMINE HYDROCHLORIDE
     Indication: SEIZURE
  19. FORANE [Suspect]
     Active Substance: ISOFLURANE
     Indication: STATUS EPILEPTICUS
     Dosage: UNK, UNKNOWN
     Route: 065
  20. PHENOBARBITAL. [Suspect]
     Active Substance: PHENOBARBITAL
     Indication: STATUS EPILEPTICUS
     Dosage: 150 MG, Q.12H
     Route: 065
  21. PROPOFOL. [Suspect]
     Active Substance: PROPOFOL
     Indication: STATUS EPILEPTICUS
     Dosage: UNK, UNKNOWN
     Route: 065
  22. PHENOBARBITAL. [Suspect]
     Active Substance: PHENOBARBITAL
     Indication: MAINTENANCE OF ANAESTHESIA
     Dosage: 150 MG, BID
     Route: 065
  23. ISOFLURANE. [Suspect]
     Active Substance: ISOFLURANE
     Indication: SEIZURE
     Route: 065
  24. APO-MIDAZOLAM INJECTABLE (APOTEX STD) [Suspect]
     Active Substance: MIDAZOLAM HYDROCHLORIDE
     Indication: SEIZURE
  25. APO-LEVETIRACETAM [Suspect]
     Active Substance: LEVETIRACETAM
     Indication: MAINTENANCE OF ANAESTHESIA
  26. PROPOFOL. [Suspect]
     Active Substance: PROPOFOL
     Indication: ELECTROENCEPHALOGRAM ABNORMAL
  27. APO-MIDAZOLAM INJECTABLE (APOTEX STD) [Suspect]
     Active Substance: MIDAZOLAM HYDROCHLORIDE
     Indication: ELECTROENCEPHALOGRAM ABNORMAL

REACTIONS (14)
  - Procedural intestinal perforation [Unknown]
  - Left ventricular hypertrophy [Unknown]
  - Abscess [Unknown]
  - Abdominal distension [Unknown]
  - Vomiting [Unknown]
  - Drug ineffective [Unknown]
  - Cardiomegaly [Unknown]
  - Systemic inflammatory response syndrome [Unknown]
  - Hypotension [Unknown]
  - Necrosis ischaemic [Unknown]
  - Intra-abdominal pressure increased [Unknown]
  - Perforation [Unknown]
  - Intestinal ischaemia [Unknown]
  - Pneumatosis [Unknown]
